FAERS Safety Report 21461581 (Version 2)
Quarter: 2022Q4

REPORT INFORMATION
  Report Type: Report from Study
  Country: US (occurrence: US)
  Receive Date: 20221015
  Receipt Date: 20221019
  Transmission Date: 20230112
  Serious: Yes (Hospitalization, Other)
  Sender: FDA-Public Use
  Company Number: US-ABBVIE-4154652

PATIENT
  Age: 72 Year
  Sex: Female
  Weight: 83.007 kg

DRUGS (6)
  1. HUMIRA [Suspect]
     Active Substance: ADALIMUMAB
     Indication: Colitis ulcerative
     Dosage: 40MG/0.4ML, FORM STRENGTH 40 MG
     Route: 058
     Dates: start: 202206
  2. CARVEDILOL [Concomitant]
     Active Substance: CARVEDILOL
     Indication: Blood pressure measurement
  3. GABAPENTIN [Concomitant]
     Active Substance: GABAPENTIN
     Indication: Neuralgia
  4. ATORVASTATIN [Concomitant]
     Active Substance: ATORVASTATIN
     Indication: Blood cholesterol
  5. CYCLOBENZAPRINE [Concomitant]
     Active Substance: CYCLOBENZAPRINE
     Indication: Muscle relaxant therapy
  6. TRAZODONE [Concomitant]
     Active Substance: TRAZODONE HYDROCHLORIDE
     Indication: Sleep disorder therapy

REACTIONS (2)
  - Sepsis [Recovering/Resolving]
  - Large intestine infection [Recovering/Resolving]

NARRATIVE: CASE EVENT DATE: 20220904
